FAERS Safety Report 13829596 (Version 4)
Quarter: 2020Q3

REPORT INFORMATION
  Report Type: Report from Study
  Country: FR (occurrence: FR)
  Receive Date: 20170803
  Receipt Date: 20171127
  Transmission Date: 20201104
  Serious: Yes (Death, Hospitalization, Other)
  Sender: FDA-Public Use
  Company Number: FR-ASTRAZENECA-2016SE78669

PATIENT
  Age: 60 Year
  Sex: Male
  Weight: 72 kg

DRUGS (11)
  1. NOCTAMIDE [Concomitant]
     Active Substance: LORMETAZEPAM
     Dates: start: 20160418
  2. DOLIPRANE [Concomitant]
     Active Substance: ACETAMINOPHEN
     Indication: UPPER LIMB FRACTURE
     Dates: start: 20160429, end: 20160614
  3. XGEVA [Concomitant]
     Active Substance: DENOSUMAB
     Indication: SQUAMOUS CELL CARCINOMA OF HEAD AND NECK
     Dates: start: 20151112
  4. OXYCONTIN [Concomitant]
     Active Substance: OXYCODONE HYDROCHLORIDE
     Dates: start: 20160608, end: 20160615
  5. MEDI4736 [Suspect]
     Active Substance: DURVALUMAB
     Indication: SQUAMOUS CELL CARCINOMA OF HEAD AND NECK
     Route: 042
     Dates: start: 20160610
  6. OXYCONTIN [Concomitant]
     Active Substance: OXYCODONE HYDROCHLORIDE
     Dates: start: 20160616, end: 20160717
  7. OXYNORM [Concomitant]
     Active Substance: OXYCODONE HYDROCHLORIDE
     Dates: start: 20160608
  8. DOLIPRANE [Concomitant]
     Active Substance: ACETAMINOPHEN
     Indication: UPPER LIMB FRACTURE
     Dates: start: 20160615
  9. L?THYROXINE SERB [Concomitant]
     Indication: PROPHYLAXIS
     Dates: start: 20160611
  10. TREMELIMUMAB. [Suspect]
     Active Substance: TREMELIMUMAB
     Indication: SQUAMOUS CELL CARCINOMA OF HEAD AND NECK
     Route: 042
     Dates: start: 20160610
  11. STUDY PROCEDURE [Suspect]
     Active Substance: INVESTIGATIONAL PRODUCT
     Indication: SQUAMOUS CELL CARCINOMA OF HEAD AND NECK
     Route: 065

REACTIONS (1)
  - Anaemia [Recovering/Resolving]

NARRATIVE: CASE EVENT DATE: 20160623
